FAERS Safety Report 9130485 (Version 2)
Quarter: 2013Q1

REPORT INFORMATION
  Report Type: Spontaneous
  Country: US (occurrence: US)
  Receive Date: 20130301
  Receipt Date: 20130325
  Transmission Date: 20140127
  Serious: Yes (Death)
  Sender: FDA-Public Use
  Company Number: US-BIOGENIDEC-2013BI019433

PATIENT
  Age: 62 Year
  Sex: Female

DRUGS (11)
  1. TYSABRI [Suspect]
     Indication: MULTIPLE SCLEROSIS
     Route: 042
     Dates: start: 20080924, end: 20120628
  2. ESTRADIOL [Concomitant]
     Route: 048
  3. BACLOFEN [Concomitant]
     Route: 048
  4. OXYBUTYNIN CHLORIDE [Concomitant]
  5. CLONAZEPAM [Concomitant]
     Route: 048
  6. TRAZODONE HCL [Concomitant]
     Route: 048
  7. NIFEDIAC CC [Concomitant]
     Route: 048
  8. NORCO [Concomitant]
     Route: 048
  9. PRILOSEC [Concomitant]
  10. PROZAC [Concomitant]
     Route: 048
  11. DIFLUCAN [Concomitant]

REACTIONS (3)
  - Weight decreased [Unknown]
  - Chronic obstructive pulmonary disease [Unknown]
  - Multiple sclerosis [Fatal]
